FAERS Safety Report 18501042 (Version 1)
Quarter: 2020Q4

REPORT INFORMATION
  Report Type: Spontaneous
  Country: US (occurrence: US)
  Receive Date: 20201112
  Receipt Date: 20201112
  Transmission Date: 20210114
  Serious: Yes (Hospitalization)
  Sender: FDA-Public Use
  Company Number: None

PATIENT
  Sex: Female

DRUGS (9)
  1. ESTRADIOL, [Concomitant]
  2. KETOCONAZOLE, [Concomitant]
  3. GABAPENTIN, [Concomitant]
  4. PANTOPRAZOLE, [Concomitant]
  5. CYANOCOBALAM, [Concomitant]
  6. LEVETIRACETA [Concomitant]
     Active Substance: LEVETIRACETAM
  7. TRIAMCINOLON CRE [Concomitant]
  8. AVONEX PEN [Suspect]
     Active Substance: INTERFERON BETA-1A
     Indication: MULTIPLE SCLEROSIS
     Dosage: ?          OTHER DOSE:1 PEN;OTHER ROUTE:IM?
     Dates: start: 20190313
  9. VITAMIN D [Concomitant]
     Active Substance: VITAMIN D NOS

REACTIONS (3)
  - Seizure [None]
  - Concussion [None]
  - Fall [None]
